FAERS Safety Report 11392169 (Version 1)
Quarter: 2015Q3

REPORT INFORMATION
  Report Type: Spontaneous
  Country: US (occurrence: None)
  Receive Date: 20150817
  Receipt Date: 20150817
  Transmission Date: 20151125
  Serious: Yes (Other)
  Sender: FDA-Public Use
  Company Number: 2014P1001276

PATIENT
  Age: 17 Year
  Sex: Female
  Weight: 36.29 kg

DRUGS (3)
  1. KEPPRA [Concomitant]
     Active Substance: LEVETIRACETAM
  2. TROKENDI XR [Suspect]
     Active Substance: TOPIRAMATE
     Indication: SEIZURE
     Route: 048
     Dates: start: 20140206, end: 20140211
  3. TOPAMAX [Suspect]
     Active Substance: TOPIRAMATE
     Dates: start: 201402, end: 20140205

REACTIONS (9)
  - Dizziness [None]
  - Amnesia [None]
  - Eye pain [None]
  - Pruritus [None]
  - Aphasia [None]
  - Palpitations [None]
  - Anxiety [None]
  - Paraesthesia [None]
  - Rectal spasm [None]

NARRATIVE: CASE EVENT DATE: 20140207
